APPROVED DRUG PRODUCT: METHYLTESTOSTERONE
Active Ingredient: METHYLTESTOSTERONE
Strength: 10MG
Dosage Form/Route: CAPSULE;ORAL
Application: A215270 | Product #001 | TE Code: AB
Applicant: NOVITIUM PHARMA LLC
Approved: Feb 18, 2022 | RLD: No | RS: No | Type: RX